FAERS Safety Report 6314552-8 (Version None)
Quarter: 2009Q3

REPORT INFORMATION
  Report Type: 
  Country: None (occurrence: None)
  Receive Date: 20090819
  Receipt Date: 20090811
  Transmission Date: 20100115
  Serious: Yes (Hospitalization, Other)
  Sender: FDA-Public Use
  Company Number: PHEH2009US09200

PATIENT
  Sex: Female

DRUGS (1)
  1. VIVELLE-DOT [Suspect]
     Indication: HYSTERECTOMY
     Dosage: 0.05 UNK, UNK
     Route: 062

REACTIONS (2)
  - COLONIC STENOSIS [None]
  - SURGERY [None]
